FAERS Safety Report 7412212-3 (Version None)
Quarter: 2011Q2

REPORT INFORMATION
  Report Type: 
  Country: None (occurrence: None)
  Receive Date: 20110413
  Receipt Date: 20110331
  Transmission Date: 20111010
  Serious: Yes (Hospitalization, Other)
  Sender: FDA-Public Use
  Company Number: FR-ELI_LILLY_AND_COMPANY-FR201103008751

PATIENT
  Sex: Male

DRUGS (6)
  1. GAVISCON                                /GFR/ [Concomitant]
     Dosage: UNK
     Route: 048
     Dates: end: 20110306
  2. CYMBALTA [Suspect]
     Dosage: 30 MG, BID
     Route: 048
     Dates: end: 20110306
  3. LYRICA [Concomitant]
     Dosage: 200 MG, QD
     Route: 048
     Dates: end: 20110306
  4. VALIUM [Concomitant]
     Dosage: 25 MG, BID
     Route: 048
  5. SKENAN [Concomitant]
     Dosage: 20 MG, QD
     Route: 048
  6. DAFALGAN [Concomitant]
     Dosage: 500 MG, QD
     Route: 048

REACTIONS (3)
  - ASPARTATE AMINOTRANSFERASE INCREASED [None]
  - RHABDOMYOLYSIS [None]
  - ALANINE AMINOTRANSFERASE INCREASED [None]
